FAERS Safety Report 11647914 (Version 1)
Quarter: 2015Q4

REPORT INFORMATION
  Report Type: Spontaneous
  Country: US (occurrence: None)
  Receive Date: 20151020
  Receipt Date: 20151020
  Transmission Date: 20160304
  Serious: Yes (Disabling)
  Sender: FDA-Public Use
  Company Number: None

PATIENT
  Age: 39 Year
  Sex: Female
  Weight: 104.33 kg

DRUGS (6)
  1. MAGNESIUM [Concomitant]
     Active Substance: MAGNESIUM
  2. VITAMIN K [Concomitant]
     Active Substance: PHYTONADIONE
  3. L-THEANINE [Concomitant]
     Active Substance: DIETARY SUPPLEMENT
  4. VITAMIN D [Concomitant]
     Active Substance: CHOLECALCIFEROL
  5. KLONOPIN [Concomitant]
     Active Substance: CLONAZEPAM
  6. LEVAQUIN [Suspect]
     Active Substance: LEVOFLOXACIN
     Indication: ANTIBIOTIC PROPHYLAXIS
     Route: 048
     Dates: start: 20141101, end: 20151005

REACTIONS (19)
  - Initial insomnia [None]
  - Activities of daily living impaired [None]
  - Abasia [None]
  - Panic attack [None]
  - Headache [None]
  - Alcohol intolerance [None]
  - Urinary tract infection [None]
  - Device related infection [None]
  - Muscle twitching [None]
  - Pain in extremity [None]
  - Palpitations [None]
  - Vision blurred [None]
  - Impaired work ability [None]
  - Coordination abnormal [None]
  - Dyspepsia [None]
  - Gastric disorder [None]
  - Mental disorder [None]
  - Impaired driving ability [None]
  - Heart rate increased [None]

NARRATIVE: CASE EVENT DATE: 20141101
